FAERS Safety Report 8771682 (Version 1)
Quarter: 2012Q4

REPORT INFORMATION
  Report Type: 
  Country: US (occurrence: US)
  Receive Date: 20120905
  Receipt Date: 20120905
  Transmission Date: 20130627
  Serious: Yes (Death)
  Sender: FDA-Public Use
  Company Number: US-ROCHE-1116065

PATIENT
  Sex: Male

DRUGS (2)
  1. ZELBORAF [Suspect]
     Indication: MALIGNANT MELANOMA
  2. ERIVEDGE [Suspect]
     Indication: MALIGNANT MELANOMA
     Route: 065

REACTIONS (2)
  - Death [Fatal]
  - Drug effect decreased [Unknown]
